FAERS Safety Report 8923843 (Version 1)
Quarter: 2012Q4

REPORT INFORMATION
  Report Type: 
  Country: US (occurrence: US)
  Receive Date: 20121126
  Receipt Date: 20121126
  Transmission Date: 20130627
  Serious: Yes (Hospitalization)
  Sender: FDA-Public Use
  Company Number: US-B.I. PHARMACEUTICALS,INC./RIDGEFIELD-2012-BI-00961BP

PATIENT
  Sex: Male

DRUGS (4)
  1. PRADAXA [Suspect]
     Dosage: 150 mg
     Route: 048
     Dates: start: 20121103
  2. ATENOLOL [Concomitant]
     Indication: HYPERTENSION
     Dosage: 50 mg
     Route: 048
  3. HYZAAR [Concomitant]
     Indication: HYPERTENSION
     Route: 048
  4. PRADAXA [Suspect]
     Indication: ATRIAL FIBRILLATION
     Dosage: 300 mg
     Route: 048
     Dates: start: 2011, end: 20121102

REACTIONS (3)
  - Hypertension [Recovered/Resolved]
  - Gout [Not Recovered/Not Resolved]
  - Staphylococcal infection [Recovered/Resolved]
